FAERS Safety Report 7459338-6 (Version None)
Quarter: 2011Q2

REPORT INFORMATION
  Report Type: 
  Country: None (occurrence: None)
  Receive Date: 20110505
  Receipt Date: 20110503
  Transmission Date: 20111010
  Serious: No
  Sender: FDA-Public Use
  Company Number: US-PFIZER INC-2011096019

PATIENT
  Sex: Female
  Weight: 43.084 kg

DRUGS (1)
  1. NEURONTIN [Suspect]
     Indication: NEUROPATHY PERIPHERAL
     Dosage: 100 MG, 3X/DAY
     Route: 048
     Dates: start: 20110401, end: 20110430

REACTIONS (5)
  - ABDOMINAL PAIN UPPER [None]
  - DYSPEPSIA [None]
  - GASTROINTESTINAL PAIN [None]
  - CHEST DISCOMFORT [None]
  - OESOPHAGEAL DISCOMFORT [None]
